FAERS Safety Report 7082001-0 (Version None)
Quarter: 2010Q4

REPORT INFORMATION
  Report Type: 
  Country: None (occurrence: None)
  Receive Date: 20101103
  Receipt Date: 20101027
  Transmission Date: 20110411
  Serious: Yes (Other)
  Sender: FDA-Public Use
  Company Number: CL-PFIZER INC-2010137594

PATIENT
  Sex: Female

DRUGS (1)
  1. ALTRULINE [Suspect]
     Dosage: 0.5 DF, UNK
     Dates: start: 20101026

REACTIONS (3)
  - ANXIETY [None]
  - JOINT STIFFNESS [None]
  - NUCHAL RIGIDITY [None]
